FAERS Safety Report 16140231 (Version 1)
Quarter: 2019Q1

REPORT INFORMATION
  Report Type: Spontaneous
  Country: US (occurrence: US)
  Receive Date: 20190331
  Receipt Date: 20190331
  Transmission Date: 20190418
  Serious: No
  Sender: FDA-Public Use
  Company Number: US-INCYTE CORPORATION-2019IN002943

PATIENT

DRUGS (1)
  1. JAKAFI [Suspect]
     Active Substance: RUXOLITINIB
     Dosage: 5 MG, 3X/WEEK
     Route: 048
     Dates: start: 20131211

REACTIONS (3)
  - Inappropriate schedule of product administration [Unknown]
  - Visual impairment [Unknown]
  - Eye disorder [Unknown]
